FAERS Safety Report 13836361 (Version 5)
Quarter: 2018Q2

REPORT INFORMATION
  Report Type: Spontaneous
  Country: US (occurrence: US)
  Receive Date: 20170804
  Receipt Date: 20180510
  Transmission Date: 20180711
  Serious: Yes (Death, Life-Threatening, Hospitalization, Other)
  Sender: FDA-Public Use
  Company Number: PHEH2017US024387

PATIENT
  Age: 71 Year
  Sex: Female

DRUGS (37)
  1. ARICEPT [Concomitant]
     Active Substance: DONEPEZIL HYDROCHLORIDE
     Indication: PRODUCT USED FOR UNKNOWN INDICATION
     Dosage: 10 MG, QD
     Route: 048
     Dates: end: 20170814
  2. WARFARIN [Concomitant]
     Active Substance: WARFARIN
     Indication: PRODUCT USED FOR UNKNOWN INDICATION
     Dosage: 2.5 MG, UNK
     Route: 048
  3. FUROSEMIDE. [Concomitant]
     Active Substance: FUROSEMIDE
     Indication: PRODUCT USED FOR UNKNOWN INDICATION
     Dosage: 40 MG, QD
     Route: 048
  4. MECLIZINE [Concomitant]
     Active Substance: MECLIZINE HYDROCHLORIDE
     Indication: PRODUCT USED FOR UNKNOWN INDICATION
     Dosage: 1 DF, QD IN EVENING
     Route: 048
     Dates: end: 20170814
  5. GUAIFENESIN/CODEINE [Concomitant]
     Active Substance: CODEINE PHOSPHATE\GUAIFENESIN
     Indication: COUGH
     Dosage: 5 ML (100 MG-10 MG/5 ML), PRN
     Route: 048
     Dates: end: 20170814
  6. ASPIR 81 [Concomitant]
     Indication: PRODUCT USED FOR UNKNOWN INDICATION
     Dosage: 1 DF, QD
     Route: 048
     Dates: end: 20170814
  7. ACETAMINOPHEN. [Concomitant]
     Active Substance: ACETAMINOPHEN
     Indication: PAIN
     Dosage: 1 DF, 4H PRN
     Route: 048
     Dates: end: 20170814
  8. TUMS [Concomitant]
     Active Substance: CALCIUM CARBONATE
     Indication: DYSPEPSIA
     Dosage: 2 DF, TID
     Route: 048
     Dates: end: 20170814
  9. CARBIDOPA/LEVODOPA [Concomitant]
     Active Substance: CARBIDOPA\LEVODOPA
     Indication: PRODUCT USED FOR UNKNOWN INDICATION
     Dosage: 1 DF, TID (AT LEAST 30 MINUTES BEFORE MEALS)
     Route: 048
     Dates: end: 20170814
  10. KLOR-CON M10 [Concomitant]
     Active Substance: POTASSIUM CHLORIDE
     Indication: MINERAL SUPPLEMENTATION
     Dosage: 1 DF, BID
     Route: 048
     Dates: end: 20170814
  11. LUNESTA [Concomitant]
     Active Substance: ESZOPICLONE
     Indication: INSOMNIA
     Dosage: 1 DF, QD
     Route: 048
     Dates: end: 20170814
  12. TRINTELLIX [Concomitant]
     Active Substance: VORTIOXETINE HYDROBROMIDE
     Indication: PRODUCT USED FOR UNKNOWN INDICATION
     Dosage: 10 MG, QD
     Route: 048
     Dates: end: 20170814
  13. VORTIOXETINE. [Concomitant]
     Active Substance: VORTIOXETINE
     Indication: PRODUCT USED FOR UNKNOWN INDICATION
     Dosage: 10 MG, QD
     Route: 048
  14. GILENYA [Suspect]
     Active Substance: FINGOLIMOD HYDROCHLORIDE
     Indication: MULTIPLE SCLEROSIS
     Dosage: 0.5 MG, QD
     Route: 048
     Dates: start: 20120803, end: 20170720
  15. RABEPRAZOLE [Concomitant]
     Active Substance: RABEPRAZOLE
     Indication: PRODUCT USED FOR UNKNOWN INDICATION
     Dosage: 1 DF, QD
     Route: 048
     Dates: end: 20170814
  16. CRESTOR [Concomitant]
     Active Substance: ROSUVASTATIN CALCIUM
     Indication: BLOOD CHOLESTEROL ABNORMAL
     Dosage: 20 MG, QD
     Route: 048
     Dates: end: 20170814
  17. SUCRALFATE. [Concomitant]
     Active Substance: SUCRALFATE
     Indication: PRODUCT USED FOR UNKNOWN INDICATION
     Dosage: UNK
     Route: 065
     Dates: end: 20170814
  18. POTASSIUM CHLORIDE. [Concomitant]
     Active Substance: POTASSIUM CHLORIDE
     Indication: PRODUCT USED FOR UNKNOWN INDICATION
     Dosage: 1 DF, BID
     Route: 048
  19. ROSUVASTATIN. [Concomitant]
     Active Substance: ROSUVASTATIN
     Indication: PRODUCT USED FOR UNKNOWN INDICATION
     Dosage: 20 MG, QD
     Route: 048
  20. COUMADIN [Concomitant]
     Active Substance: WARFARIN SODIUM
     Dosage: 2.5 MG, UNK
     Route: 048
     Dates: end: 20170814
  21. FUROSEMIDE. [Concomitant]
     Active Substance: FUROSEMIDE
     Dosage: 20 MG, QD
     Route: 048
     Dates: end: 20170814
  22. DONEPEZIL HCL [Concomitant]
     Active Substance: DONEPEZIL HYDROCHLORIDE
     Indication: PRODUCT USED FOR UNKNOWN INDICATION
     Dosage: 10 MG, (HS)
     Route: 048
  23. VITAMIN D3 [Concomitant]
     Active Substance: CHOLECALCIFEROL
     Indication: PRODUCT USED FOR UNKNOWN INDICATION
     Dosage: 5000 IU, QD
     Route: 048
     Dates: end: 20170814
  24. ABILIFY [Concomitant]
     Active Substance: ARIPIPRAZOLE
     Indication: PRODUCT USED FOR UNKNOWN INDICATION
     Dosage: 1 DF, QD
     Route: 048
     Dates: end: 20170814
  25. ONDANSETRON [Concomitant]
     Active Substance: ONDANSETRON
     Indication: PRODUCT USED FOR UNKNOWN INDICATION
     Dosage: UNK
     Route: 065
     Dates: end: 20170814
  26. CALCIUM CARBONATE. [Concomitant]
     Active Substance: CALCIUM CARBONATE
     Indication: PRODUCT USED FOR UNKNOWN INDICATION
     Dosage: 200 MG, TID (PRN)
     Route: 048
  27. ARIPIPRAZOLE. [Concomitant]
     Active Substance: ARIPIPRAZOLE
     Indication: PRODUCT USED FOR UNKNOWN INDICATION
     Dosage: 1 DF, QD
     Route: 048
  28. TRAZODONE [Concomitant]
     Active Substance: TRAZODONE HYDROCHLORIDE
     Indication: PRODUCT USED FOR UNKNOWN INDICATION
     Dosage: 3 DF, QD
     Route: 048
     Dates: end: 20170814
  29. GILENYA [Suspect]
     Active Substance: FINGOLIMOD HYDROCHLORIDE
     Dosage: 0.5 MG, QD
     Route: 048
     Dates: start: 20170803, end: 20170814
  30. COUMADIN [Concomitant]
     Active Substance: WARFARIN SODIUM
     Indication: THROMBOSIS PROPHYLAXIS
     Dosage: 5 MG, UNK
     Route: 048
  31. BENZTROPINE MESYLATE. [Concomitant]
     Active Substance: BENZTROPINE MESYLATE
     Indication: PRODUCT USED FOR UNKNOWN INDICATION
     Dosage: 1 DF, TID
     Route: 048
     Dates: end: 20170814
  32. ESZOPICLONE. [Concomitant]
     Active Substance: ESZOPICLONE
     Indication: PRODUCT USED FOR UNKNOWN INDICATION
     Dosage: 1 DF, BID AT BEDTIME
     Route: 048
  33. METOPROLOL SUCCINATE. [Concomitant]
     Active Substance: METOPROLOL SUCCINATE
     Indication: PRODUCT USED FOR UNKNOWN INDICATION
     Dosage: 25 MG, QD
     Route: 048
     Dates: end: 20170814
  34. LEVOTHYROXINE. [Concomitant]
     Active Substance: LEVOTHYROXINE
     Indication: PRODUCT USED FOR UNKNOWN INDICATION
     Dosage: 75 UG, QD
     Route: 048
  35. SYNTHROID [Concomitant]
     Active Substance: LEVOTHYROXINE SODIUM
     Indication: HYPOTHYROIDISM
     Dosage: 75 UG, QD
     Route: 048
     Dates: end: 20170814
  36. HYDROCODONE/ACETAMINOPHEN [Concomitant]
     Active Substance: ACETAMINOPHEN\HYDROCODONE
     Indication: PAIN
     Dosage: 1-2 TABLET, PRN
     Route: 048
     Dates: end: 20170814
  37. CHOLECALCIFEROL [Concomitant]
     Active Substance: CHOLECALCIFEROL
     Indication: PRODUCT USED FOR UNKNOWN INDICATION
     Dosage: 5000 IU, QD
     Route: 048

REACTIONS (50)
  - Arthritis [Unknown]
  - Blood immunoglobulin G decreased [Unknown]
  - Red cell distribution width decreased [Unknown]
  - Mean platelet volume increased [Unknown]
  - Red blood cell count decreased [Unknown]
  - Progressive multifocal leukoencephalopathy [Not Recovered/Not Resolved]
  - Ataxia [Unknown]
  - Stress urinary incontinence [Unknown]
  - Pharyngeal hypoaesthesia [Unknown]
  - Multiple sclerosis relapse [Unknown]
  - Hemiparesis [Unknown]
  - Dysphagia [Unknown]
  - Dementia Alzheimer^s type [Unknown]
  - Malnutrition [Unknown]
  - Blood glucose increased [Unknown]
  - Glomerular filtration rate decreased [Unknown]
  - Gait disturbance [Unknown]
  - Headache [Unknown]
  - Hypoaesthesia oral [Unknown]
  - Fatigue [Unknown]
  - Blood pressure systolic increased [Unknown]
  - Asthenia [Unknown]
  - Paralysis [Unknown]
  - Osteoporosis [Unknown]
  - Haematocrit decreased [Unknown]
  - Blood creatinine increased [Unknown]
  - Death [Fatal]
  - Dysarthria [Unknown]
  - Visual field defect [Unknown]
  - Clumsiness [Unknown]
  - Cognitive disorder [Unknown]
  - Nausea [Unknown]
  - Gastroenteritis [Unknown]
  - Blood albumin decreased [Unknown]
  - Lymphocyte count decreased [Unknown]
  - Dizziness [Unknown]
  - Memory impairment [Unknown]
  - CSF immunoglobulin decreased [Unknown]
  - Parkinson^s disease [Unknown]
  - Visual impairment [Unknown]
  - Aphasia [Unknown]
  - Anal incontinence [Unknown]
  - End stage renal disease [Unknown]
  - Depression [Unknown]
  - Hemiplegia [Unknown]
  - Vomiting [Unknown]
  - Hypertension [Unknown]
  - Tremor [Unknown]
  - Fall [Unknown]
  - Haemoglobin decreased [Unknown]

NARRATIVE: CASE EVENT DATE: 20130103
